FAERS Safety Report 24831200 (Version 6)
Quarter: 2025Q1

REPORT INFORMATION
  Report Type: Spontaneous
  Country: US (occurrence: None)
  Receive Date: 20250110
  Receipt Date: 20250327
  Transmission Date: 20250409
  Serious: Yes (Hospitalization, Other)
  Sender: INCYTE
  Company Number: US-INCYTE CORPORATION-2025IN000046

PATIENT
  Age: 33 Year
  Weight: 39.1 kg

DRUGS (46)
  1. JAKAFI [Suspect]
     Active Substance: RUXOLITINIB
     Dosage: 10 MILLIGRAM, BID
  2. JAKAFI [Suspect]
     Active Substance: RUXOLITINIB
     Dosage: 5 MILLIGRAM, BID
  3. JAKAFI [Suspect]
     Active Substance: RUXOLITINIB
     Dosage: 5 MILLIGRAM, BID
  4. BLEOMYCIN [Suspect]
     Active Substance: BLEOMYCIN SULFATE
     Route: 065
  5. DACARBAZINE [Suspect]
     Active Substance: DACARBAZINE
     Route: 065
  6. DOXORUBICIN HYDROCHLORIDE [Suspect]
     Active Substance: DOXORUBICIN HYDROCHLORIDE
     Route: 065
  7. VINBLASTINE SULFATE [Suspect]
     Active Substance: VINBLASTINE SULFATE
     Route: 065
  8. AXATILIMAB [Suspect]
     Active Substance: AXATILIMAB
     Indication: Graft versus host disease
  9. AXATILIMAB [Suspect]
     Active Substance: AXATILIMAB
  10. AXATILIMAB [Suspect]
     Active Substance: AXATILIMAB
  11. AXATILIMAB [Suspect]
     Active Substance: AXATILIMAB
  12. AXATILIMAB [Suspect]
     Active Substance: AXATILIMAB
  13. AXATILIMAB [Suspect]
     Active Substance: AXATILIMAB
  14. ZOVIRAX [Concomitant]
     Active Substance: ACYCLOVIR
     Indication: Product used for unknown indication
     Dosage: 400 MILLIGRAM, Q12H
  15. ACETAMINOPHEN [Concomitant]
     Active Substance: ACETAMINOPHEN
     Indication: Product used for unknown indication
     Dosage: 1000 MILLIGRAM, Q8H PRN
  16. ACTIGALL [Concomitant]
     Active Substance: URSODIOL
     Indication: Product used for unknown indication
     Dosage: 300 MILLIGRAM, BID
  17. ATIVAN [Concomitant]
     Active Substance: LORAZEPAM
     Indication: Product used for unknown indication
     Dosage: 1 MILLIGRAM, Q6H PRN
  18. BACTRIM DS [Concomitant]
     Active Substance: SULFAMETHOXAZOLE\TRIMETHOPRIM
     Indication: Product used for unknown indication
     Dosage: 1 DOSAGE FORM, 3X/WEEK (MONDAYS, WEDNESDAYS, AND FRIDAYS)
  19. BACTRIM DS [Concomitant]
     Active Substance: SULFAMETHOXAZOLE\TRIMETHOPRIM
     Dosage: 2 DOSAGE FORM, BID
  20. BECLOMETHASONE DIPROPIONATE [Concomitant]
     Active Substance: BECLOMETHASONE DIPROPIONATE
     Indication: Product used for unknown indication
     Dosage: 2 MILLIGRAM, QID IN CORN OIL SOLUTION SUSPENSION
  21. CETYLPYRIDINIUM CHLORIDE [Concomitant]
     Active Substance: CETYLPYRIDINIUM CHLORIDE
     Indication: Product used for unknown indication
  22. BUDESONIDE [Concomitant]
     Active Substance: BUDESONIDE
     Indication: Product used for unknown indication
     Dosage: 9 MILLIGRAM, QD
  23. LOMOTIL [Concomitant]
     Active Substance: ATROPINE SULFATE\DIPHENOXYLATE HYDROCHLORIDE
     Indication: Product used for unknown indication
     Dosage: 1 DOSAGE FORM, Q6H PRN
  24. DRISDOL [Concomitant]
     Active Substance: ERGOCALCIFEROL
     Indication: Product used for unknown indication
  25. PROMACTA [Concomitant]
     Active Substance: ELTROMBOPAG OLAMINE
     Indication: Product used for unknown indication
     Dosage: 100 MILLIGRAM, QD ON AN EMPTY STOMACH 2 HOURS BEFORE OR 4 HOURS AFTER A MEAL
  26. KYTRIL [Concomitant]
     Active Substance: GRANISETRON HYDROCHLORIDE
     Indication: Product used for unknown indication
     Dosage: 1 MILLIGRAM, BID
  27. CRESEMBA [Concomitant]
     Active Substance: ISAVUCONAZONIUM SULFATE
     Indication: Product used for unknown indication
     Dosage: 372 MILLIGRAM, QD
  28. PREVYMIS [Concomitant]
     Active Substance: LETERMOVIR
     Indication: Product used for unknown indication
     Dosage: 480 MILLIGRAM, QD
  29. LEVAQUIN [Concomitant]
     Active Substance: LEVOFLOXACIN
     Indication: Product used for unknown indication
     Dosage: 750 MILLIGRAM, QD
  30. MARINOL [Concomitant]
     Active Substance: DRONABINOL
     Indication: Product used for unknown indication
     Dosage: 2.5 MILLIGRAM, BID BEFORE MEALS, 30 MINUTES BEFORE BREAKFAST AND 30 MINUTES BEFORE LUNCH
  31. MG PLUS PROTEIN [Concomitant]
     Indication: Product used for unknown indication
     Dosage: 2 DOSAGE FORM, TID
  32. MG PLUS PROTEIN [Concomitant]
     Dosage: 2 DOSAGE FORM, BID
  33. REMERON [Concomitant]
     Active Substance: MIRTAZAPINE
     Indication: Product used for unknown indication
     Dosage: 30 MILLIGRAM, QD NIGHTLY
  34. REMERON [Concomitant]
     Active Substance: MIRTAZAPINE
     Dosage: 45 MILLIGRAM, QD
  35. REMERON [Concomitant]
     Active Substance: MIRTAZAPINE
     Dosage: 40 MILLIGRAM, QD
  36. NARCAN [Concomitant]
     Active Substance: NALOXONE HYDROCHLORIDE
     Indication: Product used for unknown indication
  37. ZYPREXA [Concomitant]
     Active Substance: OLANZAPINE
     Indication: Product used for unknown indication
     Dosage: 2.5 MILLIGRAM, BID PRN
  38. ZYPREXA [Concomitant]
     Active Substance: OLANZAPINE
     Dosage: 5 MILLIGRAM, QHS
  39. OPIUM TINCTURE [Concomitant]
     Active Substance: MORPHINE
     Indication: Product used for unknown indication
     Dosage: 6 MILLIGRAM, QID PRN
  40. PROGRAF [Concomitant]
     Active Substance: TACROLIMUS
     Indication: Product used for unknown indication
  41. PROTONIX [Concomitant]
     Active Substance: PANTOPRAZOLE SODIUM
     Indication: Product used for unknown indication
     Dosage: 40 MILLIGRAM, QD
  42. KLOR-CON M10 [Concomitant]
     Active Substance: POTASSIUM CHLORIDE
     Indication: Product used for unknown indication
     Dosage: 20 MILLIEQUIVALENT, BID
  43. KLOR-CON M10 [Concomitant]
     Active Substance: POTASSIUM CHLORIDE
     Dosage: 40 MILLIEQUIVALENT, QD (MIX 2 PACKETS (40 MEQ) WITH WATER AND TAKE BY MOUTH DAILY)
  44. DELTASONE [Concomitant]
     Active Substance: PREDNISONE
     Indication: Product used for unknown indication
     Dosage: 20 MILLIGRAM, QD
  45. VALCYTE [Concomitant]
     Active Substance: VALGANCICLOVIR HYDROCHLORIDE
     Indication: Product used for unknown indication
     Dosage: 900 MILLIGRAM, BID
  46. ROZEREM [Concomitant]
     Active Substance: RAMELTEON
     Indication: Insomnia
     Dosage: 8 MILLIGRAM, QHS (AS NEEDED)

REACTIONS (36)
  - Pneumonia fungal [Recovered/Resolved]
  - Abdominal pain [Recovered/Resolved]
  - Palpitations [Not Recovered/Not Resolved]
  - Hodgkin^s disease refractory [Recovering/Resolving]
  - Chronic graft versus host disease in intestine [Unknown]
  - Graft versus host disease in liver [Recovered/Resolved]
  - Immunodeficiency [Unknown]
  - Renal atrophy [Unknown]
  - Pneumonitis [Recovered/Resolved]
  - Major depression [Unknown]
  - Immunosuppression [Unknown]
  - Herpes simplex viraemia [Unknown]
  - Pneumonia [Unknown]
  - Enterobacter bacteraemia [Recovered/Resolved]
  - Sepsis [Recovered/Resolved]
  - Influenza [Not Recovered/Not Resolved]
  - Coronavirus infection [Not Recovered/Not Resolved]
  - Thrombocytopenia [Unknown]
  - Tachycardia [Unknown]
  - Muscle disorder [Unknown]
  - Generalised anxiety disorder [Unknown]
  - Malnutrition [Unknown]
  - Gastrointestinal wall thickening [Not Recovered/Not Resolved]
  - Intestinal dilatation [Recovered/Resolved]
  - Lung opacity [Recovered/Resolved]
  - Renal disorder [Unknown]
  - Enteritis [Unknown]
  - Dry eye [Unknown]
  - Dry skin [Unknown]
  - Insomnia [Unknown]
  - Pyrexia [Unknown]
  - Rash [Unknown]
  - Cough [Recovering/Resolving]
  - Metapneumovirus infection [Unknown]
  - Rhinovirus infection [Unknown]
  - Anaemia [Unknown]
